FAERS Safety Report 4527677-4 (Version None)
Quarter: 2004Q4

REPORT INFORMATION
  Report Type: 
  Country: None (occurrence: None)
  Receive Date: 20041130
  Receipt Date: 20041011
  Transmission Date: 20050328
  Serious: No
  Sender: FDA-Public Use
  Company Number: WAES 0410USA01662

PATIENT
  Sex: Male

DRUGS (3)
  1. ZETIA [Suspect]
     Dosage: PO
     Route: 048
  2. ZOCOR [Concomitant]
  3. NIACIN [Concomitant]

REACTIONS (1)
  - PAIN IN EXTREMITY [None]
